FAERS Safety Report 11684650 (Version 1)
Quarter: 2015Q4

REPORT INFORMATION
  Report Type: Spontaneous
  Country: US (occurrence: US)
  Receive Date: 20151029
  Receipt Date: 20151029
  Transmission Date: 20160304
  Serious: No
  Sender: FDA-Public Use
  Company Number: US-THE RITEDOSE CORPORATION-2015RIT000076

PATIENT

DRUGS (2)
  1. IPRATROPIUM BROMIDE AND ALBUTEROL SULFATE [Suspect]
     Active Substance: ALBUTEROL SULFATE\IPRATROPIUM BROMIDE
     Dosage: UNK
     Route: 055
     Dates: start: 2015, end: 2015
  2. HYPERTONIC SALINE SOLUTION [Suspect]
     Active Substance: SODIUM CHLORIDE
     Indication: SPUTUM CULTURE
     Dosage: UNK, ONCE
     Route: 055
     Dates: start: 2015, end: 2015

REACTIONS (1)
  - Mycobacterium test positive [Not Recovered/Not Resolved]

NARRATIVE: CASE EVENT DATE: 2015
